FAERS Safety Report 9530949 (Version 5)
Quarter: 2013Q4

REPORT INFORMATION
  Report Type: Spontaneous
  Country: US (occurrence: US)
  Receive Date: 20130918
  Receipt Date: 20131108
  Transmission Date: 20140711
  Serious: Yes (Hospitalization)
  Sender: FDA-Public Use
  Company Number: US-JNJFOC-20130905444

PATIENT
  Age: 61 Year
  Sex: Female
  Weight: 74.39 kg

DRUGS (12)
  1. XARELTO [Suspect]
     Indication: DEEP VEIN THROMBOSIS
     Route: 048
     Dates: start: 20130717, end: 20130722
  2. XARELTO [Suspect]
     Indication: DEEP VEIN THROMBOSIS
     Route: 048
     Dates: start: 20130730
  3. COZAAR [Concomitant]
     Indication: BLOOD PRESSURE ABNORMAL
     Route: 048
     Dates: start: 2012
  4. CALCIUM [Concomitant]
     Indication: OSTEOPENIA
     Route: 048
     Dates: start: 2010
  5. VITAMIN D3 [Concomitant]
     Indication: OSTEOPENIA
     Route: 048
     Dates: start: 2010
  6. ZYRTEC [Concomitant]
     Indication: RHINITIS ALLERGIC
     Route: 048
     Dates: start: 2008
  7. GLUCOSAMINE HYDROCHLORIDE [Concomitant]
     Route: 065
  8. FLONASE [Concomitant]
     Dosage: 50  MCG/ACT, 1 EVERY EVENING, 2 SPRAYS EACH NOSTRIL
     Route: 065
  9. TYLENOL [Concomitant]
     Indication: PAIN IN EXTREMITY
     Dosage: 2-3 TIMES A DAY AS NEEDED
     Route: 065
  10. VITAMIN D [Concomitant]
     Route: 048
  11. BENICAR [Concomitant]
     Route: 065
  12. ZOFRAN [Concomitant]
     Indication: NAUSEA
     Route: 065

REACTIONS (4)
  - Haemarthrosis [Recovering/Resolving]
  - Thrombophlebitis superficial [Recovering/Resolving]
  - Hypokalaemia [Recovered/Resolved]
  - Treatment noncompliance [Unknown]
